FAERS Safety Report 8460759-3 (Version None)
Quarter: 2012Q2

REPORT INFORMATION
  Report Type: 
  Country: None (occurrence: None)
  Receive Date: 20120622
  Receipt Date: 20120618
  Transmission Date: 20120825
  Serious: Yes (Other)
  Sender: FDA-Public Use
  Company Number: US-RB-041550-12

PATIENT
  Sex: Female

DRUGS (2)
  1. SUBOXONE [Suspect]
     Indication: DRUG DEPENDENCE
     Dosage: DOSING DETAILS UNKNOWN
     Route: 064
     Dates: end: 20120617
  2. NICOTINE [Suspect]
     Indication: NICOTINE DEPENDENCE
     Dosage: ONE PACK PER DAY
     Route: 064
     Dates: end: 20120617

REACTIONS (4)
  - FOETAL EXPOSURE DURING PREGNANCY [None]
  - LOW BIRTH WEIGHT BABY [None]
  - LUNG DISORDER [None]
  - PREMATURE BABY [None]
